FAERS Safety Report 4395870-X (Version None)
Quarter: 2004Q3

REPORT INFORMATION
  Report Type: 
  Country: None (occurrence: None)
  Receive Date: 20040708
  Receipt Date: 20040629
  Transmission Date: 20050211
  Serious: Yes (Disabling, Other)
  Sender: FDA-Public Use
  Company Number: HQWYE673203MAY04

PATIENT
  Sex: Female
  Weight: 59.93 kg

DRUGS (3)
  1. EFFEXOR [Suspect]
     Indication: GENERALISED ANXIETY DISORDER
     Dosage: 75 MG 1X PER 1 DAY, ORAL
     Route: 048
     Dates: start: 20031001, end: 20040101
  2. EFFEXOR XR [Suspect]
     Dosage: 37.5 MG 1X PER 1 DAY, ORAL
     Route: 048
     Dates: start: 20031001, end: 20040101
  3. NEXIUM [Concomitant]

REACTIONS (2)
  - DRUG DEPENDENCE [None]
  - DRUG WITHDRAWAL SYNDROME [None]
